FAERS Safety Report 7767801-3 (Version None)
Quarter: 2011Q3

REPORT INFORMATION
  Report Type: 
  Country: None (occurrence: None)
  Receive Date: 20110922
  Receipt Date: 20110610
  Transmission Date: 20111222
  Serious: Yes (Hospitalization)
  Sender: FDA-Public Use
  Company Number: US-ASTRAZENECA-2011SE35561

PATIENT
  Age: 52 Year
  Sex: Female
  Weight: 94.3 kg

DRUGS (1)
  1. SEROQUEL XR [Suspect]
     Indication: BIPOLAR DISORDER
     Dosage: 200 MG QID
     Route: 048
     Dates: start: 20091001, end: 20100901

REACTIONS (1)
  - HYPERGLYCAEMIA [None]
